FAERS Safety Report 5369498-9 (Version None)
Quarter: 2007Q2

REPORT INFORMATION
  Report Type: 
  Country: None (occurrence: None)
  Receive Date: 20070625
  Receipt Date: 20070620
  Transmission Date: 20071010
  Serious: Yes (Other)
  Sender: FDA-Public Use
  Company Number: A0534646A

PATIENT
  Age: 71 Year
  Sex: Female

DRUGS (13)
  1. SEREVENT [Suspect]
     Indication: EMPHYSEMA
     Dosage: 1PUFF TWICE PER DAY
     Route: 055
     Dates: start: 20030401, end: 20041118
  2. SEREVENT [Suspect]
     Route: 055
  3. ADVAIR DISKUS 100/50 [Suspect]
     Indication: CHRONIC OBSTRUCTIVE PULMONARY DISEASE
     Dosage: 1PUFF PER DAY
     Route: 055
     Dates: start: 20041101
  4. UNIPHYL [Concomitant]
  5. SPIRIVA [Concomitant]
  6. TYLENOL [Concomitant]
  7. XALATAN [Concomitant]
  8. TRUSOPT [Concomitant]
  9. CRESTOR [Concomitant]
  10. ALBUTEROL [Concomitant]
  11. OXYGEN [Concomitant]
  12. CARDIZEM [Concomitant]
  13. LIPITOR [Concomitant]

REACTIONS (11)
  - ARRHYTHMIA [None]
  - ATRIAL FIBRILLATION [None]
  - CATARACT [None]
  - CONDITION AGGRAVATED [None]
  - CONJUNCTIVITIS [None]
  - DRY MOUTH [None]
  - DYSPNOEA [None]
  - GLAUCOMA [None]
  - HEADACHE [None]
  - OSTEOPOROSIS [None]
  - WEIGHT DECREASED [None]
